FAERS Safety Report 4709868-2 (Version None)
Quarter: 2005Q3

REPORT INFORMATION
  Report Type: 
  Country: None (occurrence: None)
  Receive Date: 20050708
  Receipt Date: 20050630
  Transmission Date: 20060218
  Serious: Yes (Other)
  Sender: FDA-Public Use
  Company Number: US-GLAXOSMITHKLINE-A0564716A

PATIENT
  Age: 60 Year
  Sex: Female
  Weight: 61.4 kg

DRUGS (1)
  1. SENSODYNE-F [Suspect]
     Indication: SENSITIVITY OF TEETH
     Dates: end: 20050601

REACTIONS (2)
  - HEPATIC ENZYME INCREASED [None]
  - ORAL MUCOSAL EXFOLIATION [None]
